FAERS Safety Report 16267791 (Version 1)
Quarter: 2019Q2

REPORT INFORMATION
  Report Type: Spontaneous
  Country: US (occurrence: US)
  Receive Date: 20190503
  Receipt Date: 20190503
  Transmission Date: 20190711
  Serious: Yes (Hospitalization)
  Sender: FDA-Public Use
  Company Number: US-009507513-1904USA010220

PATIENT
  Age: 49 Year
  Sex: Female
  Weight: 47.6 kg

DRUGS (6)
  1. OLMESARTAN MEDOXOMIL. [Suspect]
     Active Substance: OLMESARTAN MEDOXOMIL
     Dosage: DAILY DOSE UNKNOWN
     Route: 065
     Dates: start: 20190205
  2. UBIDECARENONE [Concomitant]
     Active Substance: UBIDECARENONE
     Dosage: UNKNOWN
  3. OLMESARTAN MEDOXOMIL. [Suspect]
     Active Substance: OLMESARTAN MEDOXOMIL
     Indication: HYPERTENSION
     Dosage: 40 MILLIGRAM, QD
     Route: 048
     Dates: start: 2011
  4. AMLODIPINE [Concomitant]
     Active Substance: AMLODIPINE BESYLATE
     Dosage: UNKNOWN
  5. COZAAR [Suspect]
     Active Substance: LOSARTAN POTASSIUM
     Indication: HYPERTENSION
     Dosage: DAILY DOSE UNKNOWN
     Route: 065
     Dates: end: 201902
  6. BIOTIN [Concomitant]
     Active Substance: BIOTIN
     Dosage: UNKNOWN

REACTIONS (9)
  - Hyperthyroidism [Unknown]
  - Heart rate increased [Recovered/Resolved]
  - Decreased appetite [Not Recovered/Not Resolved]
  - Drug ineffective [Recovered/Resolved]
  - Blood pressure inadequately controlled [Recovered/Resolved]
  - Diarrhoea [Not Recovered/Not Resolved]
  - Thyroid mass [Unknown]
  - Dizziness [Not Recovered/Not Resolved]
  - Weight decreased [Recovered/Resolved]

NARRATIVE: CASE EVENT DATE: 2011
